FAERS Safety Report 5025760-0 (Version None)
Quarter: 2006Q2

REPORT INFORMATION
  Report Type: 
  Country: None (occurrence: None)
  Receive Date: 20060614
  Receipt Date: 20060607
  Transmission Date: 20061013
  Serious: Yes (Hospitalization)
  Sender: FDA-Public Use
  Company Number: US-JNJFOC-20060602749

PATIENT
  Sex: Female
  Weight: 106.6 kg

DRUGS (13)
  1. DURAGESIC-100 [Suspect]
     Indication: PAIN
     Route: 062
  2. TOPAMAX [Suspect]
     Indication: BACK PAIN
     Route: 048
  3. VIVELLE [Concomitant]
     Indication: OESTROGEN REPLACEMENT THERAPY
     Dosage: 1 MG PATCH, 1 PATCH 1-2 TIMES PER WEEK, TRANSDERMAL
     Route: 062
  4. ESTRACE [Concomitant]
     Indication: OESTROGEN REPLACEMENT THERAPY
     Route: 048
  5. LISINOPRIL [Concomitant]
     Indication: HYPERTENSION
     Route: 048
  6. ZYRTEC [Concomitant]
     Indication: MULTIPLE ALLERGIES
     Route: 048
  7. FLEXERIL [Concomitant]
     Indication: BACK PAIN
     Route: 048
  8. WELLBUTRIN XL [Concomitant]
     Indication: DEPRESSION
     Route: 048
  9. LEXAPRO [Concomitant]
     Indication: DEPRESSION
     Route: 048
  10. SYNTHROID [Concomitant]
     Indication: HYPOTHYROIDISM
     Route: 048
  11. OXYCONTIN [Concomitant]
     Indication: BACK PAIN
     Route: 048
  12. LORTAB [Concomitant]
     Route: 048
  13. LORTAB [Concomitant]
     Indication: BACK PAIN
     Dosage: 10 MG HYDROCODONE AND 500 MG ACETAMINOPHEN TABLET, 1 TABLET EVERY 8 HOURS ORALLY
     Route: 048

REACTIONS (3)
  - DENTAL CARIES [None]
  - FALL [None]
  - FOOT FRACTURE [None]
